FAERS Safety Report 22258575 (Version 1)
Quarter: 2023Q2

REPORT INFORMATION
  Report Type: Other
  Country: PT (occurrence: PT)
  Receive Date: 20230427
  Receipt Date: 20230427
  Transmission Date: 20230722
  Serious: Yes (Hospitalization)
  Sender: FDA-Public Use
  Company Number: None

PATIENT
  Age: 71 Year
  Sex: Male

DRUGS (1)
  1. METFORMIN [Suspect]
     Active Substance: METFORMIN HYDROCHLORIDE
     Indication: Type 2 diabetes mellitus
     Dosage: SINCE 20 YEARS

REACTIONS (4)
  - Disorientation [Unknown]
  - Depressed level of consciousness [Unknown]
  - Quadriparesis [Not Recovered/Not Resolved]
  - Neuropathy vitamin B12 deficiency [Not Recovered/Not Resolved]
